FAERS Safety Report 4323273-2 (Version None)
Quarter: 2004Q1

REPORT INFORMATION
  Report Type: 
  Country: None (occurrence: None)
  Receive Date: 20040323
  Receipt Date: 20040115
  Transmission Date: 20041129
  Serious: No
  Sender: FDA-Public Use
  Company Number: M04-341-013

PATIENT
  Age: 78 Year
  Sex: Female
  Weight: 52 kg

DRUGS (12)
  1. VELCADE [Suspect]
     Indication: MULTIPLE MYELOMA
     Dosage: INTRAVENOUS
     Route: 042
     Dates: start: 20040102
  2. ATIVAN [Concomitant]
  3. LACTULOSE [Concomitant]
  4. LEVOXYL [Concomitant]
  5. LIPITOR [Concomitant]
  6. LISINOPRIL [Concomitant]
  7. MEDROL [Concomitant]
  8. METOPROLOL [Concomitant]
  9. MILK OF MAGNESIA (MAGNESIUM HYDROXIDE) [Concomitant]
  10. OXYCODONE [Concomitant]
  11. PLAVIX [Concomitant]
  12. ZOFRAN [Concomitant]

REACTIONS (2)
  - DIARRHOEA [None]
  - RASH [None]
